FAERS Safety Report 14075967 (Version 3)
Quarter: 2018Q1

REPORT INFORMATION
  Report Type: Report from Study
  Country: JP (occurrence: JP)
  Receive Date: 20171011
  Receipt Date: 20180111
  Transmission Date: 20180508
  Serious: Yes (Death, Hospitalization)
  Sender: FDA-Public Use
  Company Number: JP-DSJP-DSJ-2017-144217

PATIENT

DRUGS (3)
  1. PLETAAL [Concomitant]
     Active Substance: CILOSTAZOL
     Dosage: 100MG/DAY
     Route: 048
     Dates: end: 20170514
  2. EDOXABAN [Suspect]
     Active Substance: EDOXABAN TOSYLATE
     Indication: ATRIAL FIBRILLATION
     Dosage: 30 MG, QD
     Route: 048
     Dates: start: 20161004, end: 20170425
  3. BUFFERIN [Concomitant]
     Active Substance: ASPIRIN
     Dosage: 81MG/DAY
     Route: 048
     Dates: end: 20170514

REACTIONS (2)
  - Humerus fracture [Not Recovered/Not Resolved]
  - Post procedural haemorrhage [Fatal]

NARRATIVE: CASE EVENT DATE: 20170508
